FAERS Safety Report 24333729 (Version 1)
Quarter: 2024Q3

REPORT INFORMATION
  Report Type: Spontaneous
  Country: US (occurrence: None)
  Receive Date: 20240917
  Receipt Date: 20240917
  Transmission Date: 20241017
  Serious: Yes (Other)
  Sender: Public
  Company Number: None

PATIENT
  Age: 37 Year
  Sex: Female
  Weight: 69.3 kg

DRUGS (1)
  1. HERBAL NOS [Suspect]
     Active Substance: HERBALS
     Indication: Fatigue
     Dosage: FREQUENCY : DAILY;?
     Route: 048

REACTIONS (6)
  - Diarrhoea [None]
  - Restlessness [None]
  - Anxiety [None]
  - Hyperhidrosis [None]
  - Pain [None]
  - Substance use [None]

NARRATIVE: CASE EVENT DATE: 20240917
